FAERS Safety Report 16809342 (Version 3)
Quarter: 2021Q2

REPORT INFORMATION
  Report Type: Report from Study
  Country: FR (occurrence: FR)
  Receive Date: 20190916
  Receipt Date: 20210527
  Transmission Date: 20210716
  Serious: Yes (Other)
  Sender: FDA-Public Use
  Company Number: PHHO2019FR009091

PATIENT
  Age: 42 Year
  Sex: Female

DRUGS (2)
  1. PEGINTERFERON ALFA?2A. [Suspect]
     Active Substance: PEGINTERFERON ALFA-2A
     Indication: CHRONIC MYELOID LEUKAEMIA
     Dosage: 45 UG, Q4W
     Route: 058
     Dates: start: 20150611, end: 20170801
  2. AMN107 [Suspect]
     Active Substance: NILOTINIB
     Indication: CHRONIC MYELOID LEUKAEMIA
     Dosage: 300 MG, BID
     Route: 048
     Dates: start: 20150709, end: 20190730

REACTIONS (2)
  - Retinal detachment [Recovered/Resolved with Sequelae]
  - Retinal tear [Recovered/Resolved with Sequelae]

NARRATIVE: CASE EVENT DATE: 20190731
